FAERS Safety Report 24422510 (Version 1)
Quarter: 2024Q4

REPORT INFORMATION
  Report Type: Spontaneous
  Country: US (occurrence: None)
  Receive Date: 20241009
  Receipt Date: 20241009
  Transmission Date: 20250114
  Serious: No
  Sender: Public
  Company Number: None

PATIENT
  Age: 38 Year
  Sex: Male

DRUGS (1)
  1. FLUOXETINE HYDROCHLORIDE [Suspect]
     Active Substance: FLUOXETINE HYDROCHLORIDE

REACTIONS (5)
  - Depression [None]
  - Suicidal ideation [None]
  - Anxiety [None]
  - Palpitations [None]
  - Tachyphrenia [None]

NARRATIVE: CASE EVENT DATE: 20231128
